FAERS Safety Report 21229840 (Version 2)
Quarter: 2022Q3

REPORT INFORMATION
  Report Type: Spontaneous
  Country: US (occurrence: US)
  Receive Date: 20220818
  Receipt Date: 20220823
  Transmission Date: 20221027
  Serious: Yes (Hospitalization, Other)
  Sender: FDA-Public Use
  Company Number: US-PFIZER INC-202201065077

PATIENT
  Age: 64 Year
  Sex: Male

DRUGS (2)
  1. BRAFTOVI [Interacting]
     Active Substance: ENCORAFENIB
     Indication: Metastatic malignant melanoma
     Dosage: 6 DF, 1X/DAY (6 CAPSULES EVERY MORNING)
     Dates: start: 202106
  2. MEKTOVI [Interacting]
     Active Substance: BINIMETINIB
     Indication: Metastatic malignant melanoma
     Dosage: 3 DF, 2X/DAY (THREE IN THE MORNING WITH THE BRAFTOVI, AND THEN ANOTHER THREE IN THE EVENING)
     Dates: start: 202106

REACTIONS (16)
  - Hernia [Unknown]
  - Multiple sclerosis [Unknown]
  - Metastatic neoplasm [Unknown]
  - Bell^s palsy [Recovering/Resolving]
  - Drug interaction [Unknown]
  - Gene mutation [Unknown]
  - COVID-19 [Recovering/Resolving]
  - Alopecia [Unknown]
  - Madarosis [Unknown]
  - Neoplasm progression [Unknown]
  - Positron emission tomogram abnormal [Unknown]
  - Fatigue [Unknown]
  - Dizziness [Unknown]
  - Hair growth abnormal [Unknown]
  - Alopecia [Unknown]
  - Memory impairment [Unknown]

NARRATIVE: CASE EVENT DATE: 20210601
